FAERS Safety Report 25868549 (Version 1)
Quarter: 2025Q4

REPORT INFORMATION
  Report Type: Spontaneous
  Country: US (occurrence: US)
  Receive Date: 20251001
  Receipt Date: 20251001
  Transmission Date: 20260118
  Serious: No
  Sender: ASTELLAS
  Company Number: US-ASTELLAS-2025-AER-053248

PATIENT
  Sex: Female

DRUGS (3)
  1. VYLOY [Suspect]
     Active Substance: ZOLBETUXIMAB-CLZB
     Indication: Product used for unknown indication
     Dosage: FIRST DOSE LAST WEEK
     Route: 065
     Dates: start: 202509, end: 202509
  2. VYLOY [Suspect]
     Active Substance: ZOLBETUXIMAB-CLZB
     Dosage: INTERRUPTED DOSE FOR APPROX. 10 MINUTES
     Route: 065
     Dates: start: 202509, end: 202509
  3. VYLOY [Suspect]
     Active Substance: ZOLBETUXIMAB-CLZB
     Dosage: AT A LOWER RATE AND THE REST OF THE INFUSION WAS COMPLETED
     Route: 065
     Dates: start: 202509, end: 202509

REACTIONS (2)
  - Feeling abnormal [Unknown]
  - Salivary hypersecretion [Unknown]

NARRATIVE: CASE EVENT DATE: 20250901
